FAERS Safety Report 9390917 (Version 5)
Quarter: 2013Q4

REPORT INFORMATION
  Report Type: Spontaneous
  Country: US (occurrence: US)
  Receive Date: 20130709
  Receipt Date: 20131105
  Transmission Date: 20140711
  Serious: No
  Sender: FDA-Public Use
  Company Number: US-PFIZER INC-2013198422

PATIENT
  Age: 77 Year
  Sex: Male
  Weight: 75 kg

DRUGS (10)
  1. SUTENT [Suspect]
     Indication: RENAL CANCER METASTATIC
     Dosage: 50 MG, CYCLIC (ON 28 DAYS, OFF 14 DAYS)
     Route: 048
     Dates: start: 20130604
  2. METOPROLOL [Concomitant]
  3. LEVOTHYROXINE [Concomitant]
  4. CALCIUM CITRATE [Concomitant]
     Dosage: UNK
  5. IRON [Concomitant]
  6. VITAMIN B12 [Concomitant]
     Dosage: UNK
  7. AMOXIL [Concomitant]
     Dosage: UNK
  8. FOLIC ACID [Concomitant]
     Dosage: UNK
  9. XGEVA [Concomitant]
     Dosage: MONTHLY
  10. CALTRATE [Concomitant]
     Dosage: UNK

REACTIONS (18)
  - Dry mouth [Recovered/Resolved]
  - Dry throat [Recovered/Resolved]
  - Gingival pain [Recovered/Resolved]
  - Oral pain [Recovered/Resolved]
  - Tongue blistering [Recovered/Resolved]
  - Glossodynia [Recovered/Resolved]
  - Paraesthesia [Recovered/Resolved]
  - Burning sensation [Recovered/Resolved]
  - Abdominal discomfort [Recovered/Resolved]
  - Decreased appetite [Unknown]
  - Dysgeusia [Unknown]
  - Chromaturia [Unknown]
  - Vision blurred [Unknown]
  - Sneezing [Unknown]
  - Cough [Unknown]
  - Increased upper airway secretion [Unknown]
  - Oropharyngeal pain [Unknown]
  - Dry skin [Unknown]
